FAERS Safety Report 12629796 (Version 1)
Quarter: 2016Q3

REPORT INFORMATION
  Report Type: Spontaneous
  Country: CH (occurrence: CH)
  Receive Date: 20160808
  Receipt Date: 20160808
  Transmission Date: 20161109
  Serious: Yes (Hospitalization)
  Sender: FDA-Public Use
  Company Number: CH-PFIZER INC-2016363910

PATIENT
  Sex: Female
  Weight: 2.7 kg

DRUGS (9)
  1. INDAPAMIDE. [Suspect]
     Active Substance: INDAPAMIDE
     Indication: ESSENTIAL HYPERTENSION
     Dosage: 1.25 MG, 1X/DAY
     Route: 064
     Dates: start: 20150624, end: 20150831
  2. INSULATARD /00646002/ [Suspect]
     Active Substance: INSULIN HUMAN
     Dosage: UNK
     Route: 064
     Dates: start: 20160222, end: 20160225
  3. AMLODIPINE BESILATE [Suspect]
     Active Substance: AMLODIPINE BESYLATE
     Indication: ESSENTIAL HYPERTENSION
     Dosage: 5 MG, 1X/DAY
     Route: 064
     Dates: start: 20150901, end: 20160222
  4. PERINDOPRIL [Suspect]
     Active Substance: PERINDOPRIL
     Indication: ESSENTIAL HYPERTENSION
     Dosage: 5 MG, 1X/DAY
     Route: 064
     Dates: start: 20150624, end: 20150831
  5. INSULATARD /00646002/ [Suspect]
     Active Substance: INSULIN HUMAN
     Indication: GESTATIONAL DIABETES
     Dosage: 8 IU, 1X/DAY
     Route: 064
     Dates: start: 201512, end: 20160105
  6. INSULATARD /00646002/ [Suspect]
     Active Substance: INSULIN HUMAN
     Dosage: 14 IU, 1X/DAY
     Route: 064
     Dates: start: 20160106, end: 20160220
  7. ASPIRIN CARDIO [Suspect]
     Active Substance: ASPIRIN
     Dosage: UNK
     Route: 064
     Dates: start: 20150920, end: 201601
  8. AMLODIPINE BESILATE [Suspect]
     Active Substance: AMLODIPINE BESYLATE
     Dosage: 10 MG, 1X/DAY
     Route: 064
     Dates: start: 20160223, end: 20160225
  9. CELESTONE CRONODOSE [Suspect]
     Active Substance: BETAMETHASONE
     Indication: IMMATURE RESPIRATORY SYSTEM
     Dosage: UNK
     Route: 064
     Dates: start: 20160111, end: 20160112

REACTIONS (4)
  - Maternal exposure during pregnancy [Recovered/Resolved]
  - Hypoglycaemia neonatal [Recovered/Resolved]
  - Premature baby [Recovered/Resolved]
  - Supraventricular tachycardia [Recovered/Resolved]

NARRATIVE: CASE EVENT DATE: 20150629
